FAERS Safety Report 24430177 (Version 1)
Quarter: 2024Q4

REPORT INFORMATION
  Report Type: Report from Study
  Country: ZA (occurrence: ZA)
  Receive Date: 20241013
  Receipt Date: 20241013
  Transmission Date: 20250114
  Serious: Yes (Other)
  Sender: ALEXION PHARMACEUTICALS
  Company Number: ZA-AstraZeneca-CH-00715042A

PATIENT
  Age: 76 Year

DRUGS (40)
  1. DAPAGLIFLOZIN [Suspect]
     Active Substance: DAPAGLIFLOZIN
     Indication: Diabetes mellitus
  2. DAPAGLIFLOZIN [Suspect]
     Active Substance: DAPAGLIFLOZIN
  3. DAPAGLIFLOZIN [Suspect]
     Active Substance: DAPAGLIFLOZIN
  4. DAPAGLIFLOZIN [Suspect]
     Active Substance: DAPAGLIFLOZIN
  5. DOXAZOSIN MESYLATE [Concomitant]
     Active Substance: DOXAZOSIN MESYLATE
     Indication: Benign prostatic hyperplasia
  6. DOXAZOSIN MESYLATE [Concomitant]
     Active Substance: DOXAZOSIN MESYLATE
  7. DOXAZOSIN MESYLATE [Concomitant]
     Active Substance: DOXAZOSIN MESYLATE
  8. DOXAZOSIN MESYLATE [Concomitant]
     Active Substance: DOXAZOSIN MESYLATE
  9. AMITRIPTYLINE [Concomitant]
     Active Substance: AMITRIPTYLINE
     Indication: Depression
  10. AMITRIPTYLINE [Concomitant]
     Active Substance: AMITRIPTYLINE
  11. AMITRIPTYLINE [Concomitant]
     Active Substance: AMITRIPTYLINE
  12. AMITRIPTYLINE [Concomitant]
     Active Substance: AMITRIPTYLINE
  13. ZOPICLONE [Concomitant]
     Active Substance: ZOPICLONE
     Indication: Insomnia
  14. ZOPICLONE [Concomitant]
     Active Substance: ZOPICLONE
  15. ZOPICLONE [Concomitant]
     Active Substance: ZOPICLONE
  16. ZOPICLONE [Concomitant]
     Active Substance: ZOPICLONE
  17. FAMUCAPS [Concomitant]
  18. FAMUCAPS [Concomitant]
  19. FAMUCAPS [Concomitant]
  20. FAMUCAPS [Concomitant]
  21. SLOW -MAG [Concomitant]
  22. SLOW -MAG [Concomitant]
  23. SLOW -MAG [Concomitant]
  24. SLOW -MAG [Concomitant]
  25. BISOPROLOL FUMARATE [Concomitant]
     Active Substance: BISOPROLOL FUMARATE
     Indication: Hypertension
  26. BISOPROLOL FUMARATE [Concomitant]
     Active Substance: BISOPROLOL FUMARATE
  27. BISOPROLOL FUMARATE [Concomitant]
     Active Substance: BISOPROLOL FUMARATE
  28. BISOPROLOL FUMARATE [Concomitant]
     Active Substance: BISOPROLOL FUMARATE
  29. VASQ10 [Concomitant]
  30. VASQ10 [Concomitant]
  31. VASQ10 [Concomitant]
  32. VASQ10 [Concomitant]
  33. RIVAROXABAN [Concomitant]
     Active Substance: RIVAROXABAN
     Indication: Anticoagulant therapy
  34. RIVAROXABAN [Concomitant]
     Active Substance: RIVAROXABAN
  35. RIVAROXABAN [Concomitant]
     Active Substance: RIVAROXABAN
  36. RIVAROXABAN [Concomitant]
     Active Substance: RIVAROXABAN
  37. ALLOPURINOL [Concomitant]
     Active Substance: ALLOPURINOL
     Indication: Gout
  38. ALLOPURINOL [Concomitant]
     Active Substance: ALLOPURINOL
  39. ALLOPURINOL [Concomitant]
     Active Substance: ALLOPURINOL
  40. ALLOPURINOL [Concomitant]
     Active Substance: ALLOPURINOL

REACTIONS (2)
  - Arterial occlusive disease [Unknown]
  - Renal disorder [Unknown]
